FAERS Safety Report 21873677 (Version 1)
Quarter: 2023Q1

REPORT INFORMATION
  Report Type: Spontaneous
  Country: US (occurrence: None)
  Receive Date: 20230116
  Receipt Date: 20230116
  Transmission Date: 20230418
  Serious: Yes (Disabling)
  Sender: FDA-Public Use
  Company Number: None

PATIENT
  Age: 54 Year
  Sex: Female
  Weight: 94.5 kg

DRUGS (8)
  1. ARISTADA [Suspect]
     Active Substance: ARIPIPRAZOLE LAUROXIL
     Indication: Schizoaffective disorder
     Dosage: OTHER QUANTITY : 1 INJECTION(S);?OTHER FREQUENCY : EVERY MONTH;?
     Route: 030
  2. CYMBALTA [Concomitant]
     Active Substance: DULOXETINE HYDROCHLORIDE
  3. LYRICA [Concomitant]
     Active Substance: PREGABALIN
  4. ATENOLOL [Concomitant]
     Active Substance: ATENOLOL
  5. INGREZZA [Concomitant]
     Active Substance: VALBENAZINE
  6. ARISTADA [Concomitant]
     Active Substance: ARIPIPRAZOLE LAUROXIL
  7. SILDENAFIL [Concomitant]
     Active Substance: SILDENAFIL
  8. ATORVASTATIN [Concomitant]
     Active Substance: ATORVASTATIN

REACTIONS (10)
  - Tongue biting [None]
  - Stomatitis [None]
  - Pain [None]
  - Insomnia [None]
  - Hypophagia [None]
  - Vomiting [None]
  - Salivary hypersecretion [None]
  - Disturbance in social behaviour [None]
  - Depression [None]
  - Tardive dyskinesia [None]

NARRATIVE: CASE EVENT DATE: 20221001
